FAERS Safety Report 7591617-4 (Version None)
Quarter: 2011Q3

REPORT INFORMATION
  Report Type: 
  Country: None (occurrence: None)
  Receive Date: 20110706
  Receipt Date: 20110131
  Transmission Date: 20111222
  Serious: Yes (Hospitalization, Other)
  Sender: FDA-Public Use
  Company Number: US-BAYER-200940422NA

PATIENT
  Age: 38 Year
  Sex: Male
  Weight: 73.6 kg

DRUGS (18)
  1. TRASYLOL [Suspect]
     Indication: CORONARY ARTERY BYPASS
     Dosage: 200 ML, UNK
     Route: 042
     Dates: start: 20010914, end: 20010914
  2. NOREPINEPHRINE BITARTRATE [Concomitant]
     Dosage: UNK
     Route: 042
     Dates: start: 20010914
  3. MANNITOL [Concomitant]
     Dosage: 12.5 G, PRIME
     Route: 042
     Dates: start: 20010914, end: 20010914
  4. LASIX [Concomitant]
     Dosage: 20 MG, UNK
     Route: 042
     Dates: start: 20010914, end: 20010914
  5. DIAZEPAM [Concomitant]
     Dosage: 10 MG, UNK
     Route: 042
     Dates: start: 20010914, end: 20010914
  6. COZAAR [Concomitant]
     Dosage: UNK
     Route: 048
     Dates: start: 20010911
  7. SOLU-MEDROL [Concomitant]
     Dosage: 40 MG, UNK
     Route: 042
     Dates: start: 20010914, end: 20010914
  8. DOPAMINE HCL [Concomitant]
     Dosage: UNK
     Route: 042
     Dates: start: 20010914
  9. MORPHINE [Concomitant]
     Route: 042
  10. HEPARIN [Concomitant]
     Dosage: 10,000 UNITS
     Route: 042
     Dates: start: 20010914, end: 20010914
  11. PLAVIX [Concomitant]
     Dosage: 75 MG, QD
     Dates: start: 20010910
  12. TRICOR [Concomitant]
     Dosage: 200 MG, QD
     Dates: start: 20010911
  13. HEPARIN [Concomitant]
     Dosage: 6 ML, UNK
     Route: 042
     Dates: start: 20010914, end: 20010914
  14. INSULIN [Concomitant]
     Dosage: UNK
  15. ZOLOFT [Concomitant]
  16. ANCEF [Concomitant]
     Dosage: 2 GRAM/50 ML
     Route: 042
     Dates: start: 20010914, end: 20010914
  17. FENTANYL [Concomitant]
     Dosage: 1000 ?G, UNK
     Route: 042
     Dates: start: 20010914, end: 20010914
  18. HEPARIN [Concomitant]
     Dosage: 26,000 UNITS
     Route: 042
     Dates: start: 20010914, end: 20010914

REACTIONS (12)
  - STRESS [None]
  - UNEVALUABLE EVENT [None]
  - FEAR [None]
  - ANXIETY [None]
  - PAIN [None]
  - RENAL FAILURE [None]
  - EMOTIONAL DISTRESS [None]
  - DEPRESSION [None]
  - RENAL INJURY [None]
  - INJURY [None]
  - RENAL IMPAIRMENT [None]
  - ANHEDONIA [None]
